FAERS Safety Report 24396764 (Version 1)
Quarter: 2024Q4

REPORT INFORMATION
  Report Type: Spontaneous
  Country: PL (occurrence: PL)
  Receive Date: 20241004
  Receipt Date: 20241004
  Transmission Date: 20250115
  Serious: Yes (Other)
  Sender: TAKEDA
  Company Number: None

PATIENT
  Age: 20 Month
  Sex: Male
  Weight: 9.5 kg

DRUGS (1)
  1. KIOVIG [Suspect]
     Active Substance: HUMAN IMMUNOGLOBULIN G
     Indication: Immunodeficiency
     Dosage: 2 GRAM
     Route: 042
     Dates: start: 20200410

REACTIONS (5)
  - Nuchal rigidity [Recovered/Resolved]
  - Lividity [Recovered/Resolved]
  - Gaze palsy [Recovered/Resolved]
  - Pyrexia [Recovered/Resolved]
  - Lateral position [Recovered/Resolved]

NARRATIVE: CASE EVENT DATE: 20200410
